FAERS Safety Report 25771145 (Version 3)
Quarter: 2025Q4

REPORT INFORMATION
  Report Type: Report from Study
  Country: TW (occurrence: TW)
  Receive Date: 20250908
  Receipt Date: 20251205
  Transmission Date: 20260117
  Serious: Yes (Hospitalization)
  Sender: TAKEDA
  Company Number: TW-JNJFOC-20250813523

PATIENT
  Age: 5 Decade
  Sex: Female

DRUGS (9)
  1. BORTEZOMIB [Suspect]
     Active Substance: BORTEZOMIB
     Indication: Plasma cell myeloma
     Dosage: UNK
  2. DEXAMETHASONE [Suspect]
     Active Substance: DEXAMETHASONE
     Indication: Plasma cell myeloma
     Dosage: UNK
  3. DARZALEX [Suspect]
     Active Substance: DARATUMUMAB
     Indication: Plasma cell myeloma
     Dosage: UNK
  4. DARZALEX [Suspect]
     Active Substance: DARATUMUMAB
     Dosage: UNK
  5. DARZALEX [Suspect]
     Active Substance: DARATUMUMAB
     Dosage: UNK
  6. DARZALEX [Suspect]
     Active Substance: DARATUMUMAB
     Dosage: UNK
  7. DARZALEX [Suspect]
     Active Substance: DARATUMUMAB
     Dosage: UNK
  8. DARZALEX [Suspect]
     Active Substance: DARATUMUMAB
     Dosage: UNK
  9. THALIDOMIDE [Suspect]
     Active Substance: THALIDOMIDE
     Indication: Plasma cell myeloma
     Dosage: UNK

REACTIONS (2)
  - Hospitalisation [Unknown]
  - Off label use [Unknown]
